FAERS Safety Report 20198161 (Version 1)
Quarter: 2021Q4

REPORT INFORMATION
  Report Type: Spontaneous
  Country: AT (occurrence: AT)
  Receive Date: 20211217
  Receipt Date: 20211217
  Transmission Date: 20220303
  Serious: Yes (Other)
  Sender: FDA-Public Use
  Company Number: AT-GLAXOSMITHKLINE-AT2021EME254294

PATIENT
  Sex: Female

DRUGS (2)
  1. ZEJULA [Suspect]
     Active Substance: NIRAPARIB
     Indication: Ovarian cancer recurrent
     Dosage: UNK
     Dates: end: 20211207
  2. AVASTIN [Suspect]
     Active Substance: BEVACIZUMAB
     Indication: Ovarian cancer
     Dosage: UNK

REACTIONS (7)
  - Encephalitis autoimmune [Unknown]
  - Gait disturbance [Unknown]
  - Visual impairment [Unknown]
  - Hypertension [Recovering/Resolving]
  - Headache [Unknown]
  - Off label use [Unknown]
  - Product use issue [Unknown]
